FAERS Safety Report 4489045-3 (Version None)
Quarter: 2004Q4

REPORT INFORMATION
  Report Type: 
  Country: None (occurrence: None)
  Receive Date: 20041029
  Receipt Date: 20030605
  Transmission Date: 20050328
  Serious: Yes (Disabling)
  Sender: FDA-Public Use
  Company Number: US-MERCK-0306USA00653

PATIENT
  Age: 41 Year
  Sex: Male

DRUGS (3)
  1. VIOXX [Suspect]
     Route: 048
  2. CLARITIN [Concomitant]
     Route: 065
  3. ANALGESIC OR ANESTHETIC (UNSPECIFIED) [Concomitant]
     Route: 065

REACTIONS (12)
  - ADVERSE EVENT [None]
  - BACK PAIN [None]
  - CHEST PAIN [None]
  - DIZZINESS [None]
  - HYPERLIPIDAEMIA [None]
  - HYPERTENSION [None]
  - HYPERTONIC BLADDER [None]
  - INSOMNIA [None]
  - LIMB INJURY [None]
  - POLYTRAUMATISM [None]
  - RASH PRURITIC [None]
  - TINEA INFECTION [None]
